FAERS Safety Report 10628883 (Version 1)
Quarter: 2014Q4

REPORT INFORMATION
  Report Type: Spontaneous
  Country: US (occurrence: None)
  Receive Date: 20141203
  Receipt Date: 20141203
  Transmission Date: 20150529
  Serious: No
  Sender: FDA-Public Use
  Company Number: None

PATIENT
  Age: 60 Year
  Sex: Male
  Weight: 95.26 kg

DRUGS (1)
  1. ADDERALL [Suspect]
     Active Substance: AMPHETAMINE ASPARTATE\AMPHETAMINE SULFATE\DEXTROAMPHETAMINE SACCHARATE\DEXTROAMPHETAMINE SULFATE
     Indication: ATTENTION DEFICIT/HYPERACTIVITY DISORDER
     Route: 048
     Dates: start: 20141001, end: 20141202

REACTIONS (10)
  - Product colour issue [None]
  - Product taste abnormal [None]
  - Lethargy [None]
  - Insomnia [None]
  - Product substitution issue [None]
  - Product quality issue [None]
  - Disturbance in attention [None]
  - Tremor [None]
  - Product physical consistency issue [None]
  - Fatigue [None]

NARRATIVE: CASE EVENT DATE: 20141202
